FAERS Safety Report 24377772 (Version 4)
Quarter: 2025Q1

REPORT INFORMATION
  Report Type: Report from Study
  Country: JP (occurrence: JP)
  Receive Date: 20240930
  Receipt Date: 20250319
  Transmission Date: 20250408
  Serious: No
  Sender: BOEHRINGER INGELHEIM
  Company Number: JP-NBI-2024-BI-054029

PATIENT
  Age: 59 Year
  Sex: Female
  Weight: 53.7 kg

DRUGS (4)
  1. SPEVIGO [Suspect]
     Active Substance: SPESOLIMAB-SBZO
     Indication: Pustular psoriasis
     Dates: start: 20240802, end: 20240802
  2. SPEVIGO [Suspect]
     Active Substance: SPESOLIMAB-SBZO
     Dates: start: 20240809, end: 20240809
  3. APREMILAST [Concomitant]
     Active Substance: APREMILAST
     Indication: Pustular psoriasis
     Dates: start: 20231117, end: 20241107
  4. OLOPATADINE [Concomitant]
     Active Substance: OLOPATADINE
     Indication: Pustular psoriasis

REACTIONS (1)
  - Parkinson^s disease [Unknown]

NARRATIVE: CASE EVENT DATE: 20240927
